FAERS Safety Report 7731951-8 (Version None)
Quarter: 2011Q3

REPORT INFORMATION
  Report Type: 
  Country: None (occurrence: None)
  Receive Date: 20110906
  Receipt Date: 20110719
  Transmission Date: 20111222
  Serious: No
  Sender: FDA-Public Use
  Company Number: US-AMGEN-USASP2011036657

PATIENT
  Sex: Male

DRUGS (14)
  1. RANITIDINE [Concomitant]
     Dosage: 1 MG, UNK
  2. ANTIBIOTICS [Concomitant]
     Dosage: UNK
     Dates: start: 20110718
  3. LUPRON [Concomitant]
     Dosage: UNK
  4. METFORMIN HCL [Concomitant]
     Dosage: 1 MG, UNK
  5. ASPIRIN [Concomitant]
     Dosage: UNK
  6. VITAMIN B COMPLEX CAP [Concomitant]
     Dosage: UNK
  7. PLAVIX [Concomitant]
     Dosage: 1 MG, UNK
  8. ZOCOR [Concomitant]
     Dosage: 1 MG, UNK
  9. GLUCOSAMINE CHONDROITIN [Concomitant]
     Dosage: UNK
  10. NITROGLYCERIN [Concomitant]
     Dosage: 1 MG, UNK
  11. VITAMIN D [Concomitant]
     Dosage: UNK
  12. PHENAZOPYRIDINE HCL TAB [Concomitant]
     Dosage: UNK
  13. HYDROCODONE [Concomitant]
     Dosage: UNK
  14. XGEVA [Suspect]
     Indication: METASTASES TO BONE
     Dosage: 120 MG, Q4WK
     Dates: start: 20110505

REACTIONS (3)
  - RASH PRURITIC [None]
  - ECCHYMOSIS [None]
  - RASH ERYTHEMATOUS [None]
